FAERS Safety Report 13270209 (Version 1)
Quarter: 2017Q1

REPORT INFORMATION
  Report Type: Spontaneous
  Country: US (occurrence: US)
  Receive Date: 20170224
  Receipt Date: 20170224
  Transmission Date: 20170428
  Serious: Yes (Hospitalization, Other)
  Sender: FDA-Public Use
  Company Number: US-ARALEZ PHARMACEUTICALS R+D INC.-ARA-TP-US-2017-54

PATIENT
  Age: 83 Year
  Sex: Female
  Weight: 35.41 kg

DRUGS (14)
  1. OXYCODONE/APAP [Concomitant]
     Active Substance: ACETAMINOPHEN\OXYCODONE HYDROCHLORIDE
     Indication: ARTHRITIS
  2. OXYCODONE/APAP [Concomitant]
     Active Substance: ACETAMINOPHEN\OXYCODONE HYDROCHLORIDE
     Indication: PAIN
     Route: 048
  3. OXYCODONE/APAP [Concomitant]
     Active Substance: ACETAMINOPHEN\OXYCODONE HYDROCHLORIDE
     Indication: OSTEOPOROSIS
  4. UNKNOWN (NOT SPECIFIED) [Concomitant]
     Indication: PRODUCT USED FOR UNKNOWN INDICATION
     Dates: start: 201601
  5. METOPROLOL SUCCINATE. [Suspect]
     Active Substance: METOPROLOL SUCCINATE
     Indication: BLOOD PRESSURE MANAGEMENT
     Route: 048
     Dates: start: 2016
  6. IRESSA [Suspect]
     Active Substance: GEFITINIB
     Indication: LUNG NEOPLASM MALIGNANT
     Route: 048
  7. IRESSA [Suspect]
     Active Substance: GEFITINIB
     Route: 048
     Dates: start: 20160302
  8. RANEXA [Concomitant]
     Active Substance: RANOLAZINE
     Indication: CARDIAC DISORDER
  9. DIAZEPAM. [Concomitant]
     Active Substance: DIAZEPAM
     Indication: PRODUCT USED FOR UNKNOWN INDICATION
  10. LEVOTHYROXINE. [Concomitant]
     Active Substance: LEVOTHYROXINE
     Indication: THYROID DISORDER
     Route: 048
     Dates: start: 2016
  11. DIAZEPAM. [Concomitant]
     Active Substance: DIAZEPAM
     Indication: ANXIETY
     Route: 048
  12. NITRATE [Concomitant]
     Indication: CARDIAC DISORDER
  13. CRESTOR [Suspect]
     Active Substance: ROSUVASTATIN CALCIUM
     Indication: BLOOD CHOLESTEROL
     Route: 048
     Dates: start: 2016
  14. MULTI VITAMIN [Concomitant]
     Active Substance: VITAMINS
     Indication: PRODUCT USED FOR UNKNOWN INDICATION

REACTIONS (26)
  - Coronary artery occlusion [Unknown]
  - Skin exfoliation [Unknown]
  - Cerebrovascular accident [Unknown]
  - Diarrhoea [Not Recovered/Not Resolved]
  - Adverse event [Unknown]
  - Pain [Unknown]
  - No adverse event [Unknown]
  - Headache [Unknown]
  - Hypercholesterolaemia [Unknown]
  - Sputum abnormal [Recovered/Resolved]
  - Glaucoma [Not Recovered/Not Resolved]
  - Arteritis [Unknown]
  - Rash vesicular [Recovered/Resolved]
  - Skin exfoliation [Not Recovered/Not Resolved]
  - Vision blurred [Unknown]
  - Cataract [Unknown]
  - Hypertension [Unknown]
  - Thyroid disorder [Unknown]
  - Erythema [Unknown]
  - Cough [Recovered/Resolved]
  - Pneumonia [Recovered/Resolved]
  - Feeling abnormal [Unknown]
  - Dermatitis [Unknown]
  - No adverse event [Not Recovered/Not Resolved]
  - Biopsy artery [Unknown]
  - Weight increased [Unknown]

NARRATIVE: CASE EVENT DATE: 201610
